FAERS Safety Report 7060987-8 (Version None)
Quarter: 2010Q4

REPORT INFORMATION
  Report Type: 
  Country: None (occurrence: None)
  Receive Date: 20101026
  Receipt Date: 20101018
  Transmission Date: 20110411
  Serious: Yes (Other)
  Sender: FDA-Public Use
  Company Number: CA-JNJFOC-20101005424

PATIENT
  Age: 90 Year
  Sex: Female
  Weight: 54.43 kg

DRUGS (3)
  1. EXTRA STRENGTH TYLENOL [Suspect]
     Route: 048
  2. EXTRA STRENGTH TYLENOL [Suspect]
     Indication: NECK PAIN
     Route: 048
  3. SALBUTAMOL SULFATE [Concomitant]
     Indication: WHEEZING
     Route: 055

REACTIONS (1)
  - WHEEZING [None]
